FAERS Safety Report 19713209 (Version 2)
Quarter: 2022Q1

REPORT INFORMATION
  Report Type: Spontaneous
  Country: US (occurrence: US)
  Receive Date: 20210816
  Receipt Date: 20220221
  Transmission Date: 20220423
  Serious: Yes (Other)
  Sender: FDA-Public Use
  Company Number: US-GILEAD-2021-0544311

PATIENT
  Sex: Female
  Weight: 63.95 kg

DRUGS (26)
  1. TRUVADA [Suspect]
     Active Substance: EMTRICITABINE\TENOFOVIR DISOPROXIL FUMARATE
     Indication: HIV infection
     Dosage: UNK
     Route: 048
     Dates: start: 2013, end: 2019
  2. BIKTARVY [Concomitant]
     Active Substance: BICTEGRAVIR SODIUM\EMTRICITABINE\TENOFOVIR ALAFENAMIDE FUMARATE
  3. EPIVIR [Concomitant]
     Active Substance: LAMIVUDINE
  4. NORVIR [Concomitant]
     Active Substance: RITONAVIR
  5. PREZCOBIX [Concomitant]
     Active Substance: COBICISTAT\DARUNAVIR ETHANOLATE
  6. RETROVIR [Concomitant]
     Active Substance: ZIDOVUDINE
  7. REYATAZ [Concomitant]
     Active Substance: ATAZANAVIR SULFATE
  8. TIVICAY [Concomitant]
     Active Substance: DOLUTEGRAVIR SODIUM
  9. AMOXICILLIN [Concomitant]
     Active Substance: AMOXICILLIN
  10. VITAMIN B12 [Concomitant]
     Active Substance: CYANOCOBALAMIN
  11. ENJUVIA [Concomitant]
     Active Substance: ESTROGENS, CONJUGATED SYNTHETIC B
  12. VIEKIRA PAK [Concomitant]
     Active Substance: DASABUVIR\OMBITASVIR\PARITAPREVIR\RITONAVIR
  13. AMLODIPINE [Concomitant]
     Active Substance: AMLODIPINE BESYLATE
  14. ENSURE ORIGINAL [Concomitant]
  15. IBUPROFEN [Concomitant]
     Active Substance: IBUPROFEN
  16. HYDROCODONE [Concomitant]
     Active Substance: HYDROCODONE
  17. MEGACE ES [Concomitant]
     Active Substance: MEGESTROL ACETATE
  18. CALCIUM [Concomitant]
     Active Substance: CALCIUM
  19. TRAMADOL [Concomitant]
     Active Substance: TRAMADOL
  20. LYRICA [Concomitant]
     Active Substance: PREGABALIN
  21. OXYCODONE [Concomitant]
     Active Substance: OXYCODONE
  22. FLUCONAZOLE [Concomitant]
     Active Substance: FLUCONAZOLE
  23. ESTRADIOL [Concomitant]
     Active Substance: ESTRADIOL
  24. PREDNISONE [Concomitant]
     Active Substance: PREDNISONE
  25. METHOCARBAMOL [Concomitant]
     Active Substance: METHOCARBAMOL
  26. RUKOBIA [Concomitant]
     Active Substance: FOSTEMSAVIR TROMETHAMINE

REACTIONS (13)
  - Osteoporosis [Unknown]
  - Hip fracture [Unknown]
  - Foot fracture [Recovered/Resolved]
  - Bone density decreased [Unknown]
  - Pain [Not Recovered/Not Resolved]
  - Emotional distress [Not Recovered/Not Resolved]
  - Anxiety [Not Recovered/Not Resolved]
  - Anhedonia [Not Recovered/Not Resolved]
  - Fracture [Recovered/Resolved]
  - Osteopenia [Not Recovered/Not Resolved]
  - Vitamin D deficiency [Not Recovered/Not Resolved]
  - Gait disturbance [Unknown]
  - Dysstasia [Unknown]

NARRATIVE: CASE EVENT DATE: 20130101
